FAERS Safety Report 5716220-X (Version None)
Quarter: 2008Q2

REPORT INFORMATION
  Report Type: 
  Country: None (occurrence: None)
  Receive Date: 20080417
  Receipt Date: 20080112
  Transmission Date: 20081010
  Serious: No
  Sender: FDA-Public Use
  Company Number: ADE2008-0109

PATIENT
  Age: 49 Year
  Sex: Male
  Weight: 79.3795 kg

DRUGS (2)
  1. SIMVASTATIN [Suspect]
     Indication: BLOOD CHOLESTEROL INCREASED
     Dosage: 40MG - QD - PO
     Route: 048
  2. SIMVASTATIN [Suspect]
     Indication: BLOOD TRIGLYCERIDES INCREASED
     Dosage: 40MG - QD - PO
     Route: 048

REACTIONS (2)
  - MUSCULAR WEAKNESS [None]
  - MYOPATHY [None]
